FAERS Safety Report 8957057 (Version 1)
Quarter: 2012Q4

REPORT INFORMATION
  Report Type: Report from Study
  Country: DE (occurrence: DE)
  Receive Date: 20121210
  Receipt Date: 20121210
  Transmission Date: 20130627
  Serious: Yes (Hospitalization)
  Sender: FDA-Public Use
  Company Number: DE-ROCHE-1164049

PATIENT
  Age: 80 Year
  Sex: Female
  Weight: 58 kg

DRUGS (4)
  1. TOCILIZUMAB [Suspect]
     Indication: RHEUMATOID ARTHRITIS
     Route: 042
     Dates: start: 20120531
  2. URBASON [Suspect]
     Indication: RHEUMATOID ARTHRITIS
     Route: 065
  3. DEKRISTOL [Concomitant]
  4. MARCUMAR [Concomitant]
     Indication: ATRIAL FIBRILLATION
     Route: 065

REACTIONS (3)
  - Skin ulcer [Recovered/Resolved]
  - Superinfection [Recovered/Resolved]
  - Hypercalcaemia [Recovered/Resolved with Sequelae]
